FAERS Safety Report 20439717 (Version 1)
Quarter: 2022Q1

REPORT INFORMATION
  Report Type: Spontaneous
  Country: US (occurrence: None)
  Receive Date: 20220207
  Receipt Date: 20220207
  Transmission Date: 20220423
  Serious: No
  Sender: FDA-Public Use
  Company Number: None

PATIENT
  Age: 61 Year
  Sex: Male

DRUGS (1)
  1. GLIPIZIDE [Suspect]
     Active Substance: GLIPIZIDE
     Indication: Diabetes mellitus
     Dosage: 10MG BID PO?
     Route: 048
     Dates: start: 20150805, end: 20220127

REACTIONS (2)
  - Syncope [None]
  - Hypoglycaemia [None]

NARRATIVE: CASE EVENT DATE: 20220127
